FAERS Safety Report 4635173-9 (Version None)
Quarter: 2005Q2

REPORT INFORMATION
  Report Type: 
  Country: None (occurrence: None)
  Receive Date: 20050414
  Receipt Date: 20050405
  Transmission Date: 20051028
  Serious: Yes (Other)
  Sender: FDA-Public Use
  Company Number: NL-GLAXOSMITHKLINE-B0377687A

PATIENT
  Age: 14 Year
  Sex: Female

DRUGS (2)
  1. SUMATRIPTAN SUCCINATE [Suspect]
     Indication: ILL-DEFINED DISORDER
     Dosage: 10MG UNKNOWN
     Route: 045
     Dates: start: 20050117
  2. NO CONCURRENT MEDICATION [Concomitant]

REACTIONS (2)
  - CONDITION AGGRAVATED [None]
  - SKIN DYSTROPHY [None]
